FAERS Safety Report 15291616 (Version 1)
Quarter: 2018Q3

REPORT INFORMATION
  Report Type: Spontaneous
  Country: IL (occurrence: IL)
  Receive Date: 20180817
  Receipt Date: 20180817
  Transmission Date: 20181010
  Serious: Yes (Death, Hospitalization, Other)
  Sender: FDA-Public Use
  Company Number: IL-009507513-1808ISR005905

PATIENT
  Age: 62 Year
  Sex: Female

DRUGS (1)
  1. PEMBROLIZUMAB. [Suspect]
     Active Substance: PEMBROLIZUMAB
     Indication: BREAST CANCER METASTATIC
     Dosage: UNK
     Dates: start: 201801, end: 2018

REACTIONS (11)
  - Agitation [Unknown]
  - Lung infiltration [Unknown]
  - Dizziness [Unknown]
  - Troponin increased [Unknown]
  - Off label use [Unknown]
  - Pulmonary embolism [Unknown]
  - Ejection fraction abnormal [Unknown]
  - Atrioventricular block complete [Unknown]
  - Malaise [Unknown]
  - Hypotension [Unknown]
  - Myocarditis [Fatal]

NARRATIVE: CASE EVENT DATE: 201801
